FAERS Safety Report 9010470 (Version 1)
Quarter: 2013Q1

REPORT INFORMATION
  Report Type: Spontaneous
  Country: BR (occurrence: BR)
  Receive Date: 20130109
  Receipt Date: 20130109
  Transmission Date: 20140127
  Serious: Yes (Other)
  Sender: FDA-Public Use
  Company Number: BR-ROCHE-1176579

PATIENT
  Age: 42 Year
  Sex: Female
  Weight: 72 kg

DRUGS (3)
  1. RIVOTRIL [Suspect]
     Indication: DEPRESSION
     Route: 048
     Dates: start: 20121227
  2. RIVOTRIL [Suspect]
     Route: 048
     Dates: start: 2008
  3. ATENOLOL [Concomitant]
     Indication: HYPERTENSION
     Route: 065

REACTIONS (6)
  - Hypertension [Unknown]
  - Tremor [Not Recovered/Not Resolved]
  - Nausea [Not Recovered/Not Resolved]
  - Pain [Not Recovered/Not Resolved]
  - Impatience [Not Recovered/Not Resolved]
  - Nervousness [Not Recovered/Not Resolved]
